FAERS Safety Report 19960805 (Version 1)
Quarter: 2021Q4

REPORT INFORMATION
  Report Type: Other
  Country: US (occurrence: US)
  Receive Date: 20211016
  Receipt Date: 20211016
  Transmission Date: 20220304
  Serious: Yes (Other)
  Sender: FDA-Public Use
  Company Number: US-ZHEJIANG YONGTAI PHARMACEUTICALS CO..,LTD.-2120632

PATIENT
  Age: 74 Year
  Sex: Male

DRUGS (1)
  1. DOXYCYCLINE HYCLATE [Suspect]
     Active Substance: DOXYCYCLINE HYCLATE
     Indication: Device related infection
     Route: 065

REACTIONS (1)
  - Gastrointestinal injury [Unknown]
